FAERS Safety Report 6321611-2 (Version None)
Quarter: 2009Q3

REPORT INFORMATION
  Report Type: 
  Country: None (occurrence: None)
  Receive Date: 20090824
  Receipt Date: 20090813
  Transmission Date: 20100115
  Serious: Yes (Death)
  Sender: FDA-Public Use
  Company Number: JP-BAYER-200912656BYL

PATIENT
  Age: 58 Year
  Sex: Male
  Weight: 74 kg

DRUGS (15)
  1. NEXAVAR [Suspect]
     Indication: HEPATIC CANCER STAGE IV
     Dosage: TOTAL DAILY DOSE: 800 MG  UNIT DOSE: 200 MG
     Route: 048
     Dates: start: 20090707, end: 20090714
  2. LOXONIN [Concomitant]
     Indication: PAIN MANAGEMENT
     Dosage: BEFORE NEXAVAR ADMINISTRATION(PRESCRIPTION OF ANOTHER HOSPITAL)
     Route: 048
     Dates: end: 20090706
  3. LOXONIN [Concomitant]
     Route: 048
     Dates: start: 20090707, end: 20090714
  4. HISHITASE [Concomitant]
     Dosage: BEFORE NEXAVAR ADMINISTRATION(PRESCRIPTION OF ANOTHER HOSPITAL)
     Route: 048
     Dates: end: 20090706
  5. SEFTAC [Concomitant]
     Dosage: BEFORE NEXAVAR ADMINISTRATION(PRESCRIPTION OF ANOTHER HOSPITAL)
     Route: 048
     Dates: end: 20090706
  6. BISOLVON [Concomitant]
     Dosage: BEFORE NEXAVAR ADMINISTRATION(PRESCRIPTION OF ANOTHER HOSPITAL)
     Route: 048
     Dates: end: 20090706
  7. CODEINE PHOSPHATE [Concomitant]
     Dosage: BEFORE NEXAVAR ADMINISTRATION(PRESCRIPTION OF ANOTHER HOSPITAL)
     Route: 048
     Dates: end: 20090706
  8. MINOCYCLINE HCL [Concomitant]
     Dosage: BEFORE NEXAVAR ADMINISTRATION(PRESCRIPTION OF ANOTHER HOSPITAL)
     Route: 048
     Dates: end: 20090706
  9. GASTER [Concomitant]
     Dosage: BEFORE NEXAVAR ADMINISTRATION(PRESCRIPTION OF ANOTHER HOSPITAL)
     Route: 048
     Dates: end: 20090706
  10. BARACLUDE [Concomitant]
     Route: 048
     Dates: start: 20090706, end: 20090714
  11. WHITE PETROLATUM [Concomitant]
     Indication: DRY SKIN PROPHYLAXIS
     Route: 061
     Dates: start: 20090707, end: 20090714
  12. NAUZELIN [Concomitant]
     Indication: NAUSEA
     Route: 048
     Dates: start: 20090709, end: 20090714
  13. NAUZELIN [Concomitant]
     Route: 054
     Dates: start: 20090708, end: 20090714
  14. OMEPRANZE [Concomitant]
     Route: 048
     Dates: start: 20090709, end: 20090714
  15. RACOL [Concomitant]
     Indication: NUTRITIONAL SUPPORT
     Route: 048
     Dates: start: 20090709, end: 20090714

REACTIONS (1)
  - HEPATIC NEOPLASM MALIGNANT [None]
